FAERS Safety Report 7587402-X (Version None)
Quarter: 2011Q3

REPORT INFORMATION
  Report Type: 
  Country: None (occurrence: None)
  Receive Date: 20110703
  Receipt Date: 20110620
  Transmission Date: 20111222
  Serious: Yes (Other)
  Sender: FDA-Public Use
  Company Number: GB-MYLANLABS-2010S1005118

PATIENT
  Age: 31 Year
  Sex: Male

DRUGS (5)
  1. OXAZEPAM [Concomitant]
     Indication: ANXIETY
     Route: 048
     Dates: start: 20010627
  2. PIRENZEPINE [Concomitant]
     Indication: SALIVARY HYPERSECRETION
     Route: 048
  3. LANSOPRAZOLE [Suspect]
     Indication: GASTROOESOPHAGEAL REFLUX DISEASE
     Route: 048
     Dates: start: 20031001
  4. CLOZAPINE [Suspect]
     Indication: SCHIZOPHRENIA
     Route: 048
     Dates: start: 19971110
  5. CLOZAPINE [Suspect]
     Route: 048
     Dates: start: 20070129

REACTIONS (4)
  - THROMBOCYTOPENIA [None]
  - RASH [None]
  - HEPATITIS C VIRUS TEST POSITIVE [None]
  - CIRRHOSIS ALCOHOLIC [None]
